FAERS Safety Report 13923954 (Version 9)
Quarter: 2017Q4

REPORT INFORMATION
  Report Type: Spontaneous
  Country: US (occurrence: US)
  Receive Date: 20170831
  Receipt Date: 20171130
  Transmission Date: 20180320
  Serious: No
  Sender: FDA-Public Use
  Company Number: US-PFIZER INC-2017374759

PATIENT
  Age: 77 Year
  Sex: Male

DRUGS (16)
  1. C PLUS [Concomitant]
     Indication: VITAMIN SUPPLEMENTATION
     Dosage: UNK
  2. LUTEIN [Concomitant]
     Active Substance: LUTEIN
     Dosage: UNK
  3. SALMON OIL [Concomitant]
     Active Substance: FISH OIL
     Dosage: UNK
  4. ATIVAN [Concomitant]
     Active Substance: LORAZEPAM
     Dosage: UNK
  5. COZAAR [Concomitant]
     Active Substance: LOSARTAN POTASSIUM
     Dosage: UNK
  6. VALIUM [Concomitant]
     Active Substance: DIAZEPAM
     Dosage: UNK
  7. SUTENT [Suspect]
     Active Substance: SUNITINIB MALATE
     Indication: RENAL CANCER STAGE IV
     Dosage: 50 MG, CYCLIC (28 DAYS ON/14 DAYS OFF)
     Dates: start: 20170822, end: 201708
  8. ZINC. [Concomitant]
     Active Substance: ZINC
     Dosage: UNK
  9. DOXAZOSIN [Concomitant]
     Active Substance: DOXAZOSIN\DOXAZOSIN MESYLATE
     Dosage: UNK
  10. LEVOTHYROXINE. [Concomitant]
     Active Substance: LEVOTHYROXINE
     Dosage: UNK
  11. VITAMIN B [Concomitant]
     Active Substance: VITAMIN B
     Dosage: UNK
  12. PROSCAR [Concomitant]
     Active Substance: FINASTERIDE
     Dosage: UNK
  13. SUTENT [Suspect]
     Active Substance: SUNITINIB MALATE
     Dosage: 50 MG, CYCLIC (28 DAYS ON/14 DAYS OFF)
     Dates: start: 20170824
  14. COMPAZINE [Concomitant]
     Active Substance: PROCHLORPERAZINE MALEATE
     Dosage: UNK
  15. LIPITOR [Concomitant]
     Active Substance: ATORVASTATIN CALCIUM
     Dosage: UNK
  16. AMLODIPINE [Concomitant]
     Active Substance: AMLODIPINE BESYLATE
     Dosage: UNK

REACTIONS (20)
  - Fatigue [Unknown]
  - Haemorrhoids [Unknown]
  - Palmar-plantar erythrodysaesthesia syndrome [Unknown]
  - Sleep disorder [Recovered/Resolved]
  - Swelling face [Unknown]
  - Lethargy [Not Recovered/Not Resolved]
  - Dysgeusia [Not Recovered/Not Resolved]
  - Tongue discomfort [Unknown]
  - Flatulence [Not Recovered/Not Resolved]
  - Laziness [Unknown]
  - Anorectal discomfort [Unknown]
  - Nausea [Unknown]
  - Arthralgia [Not Recovered/Not Resolved]
  - Eye swelling [Unknown]
  - Skin disorder [Unknown]
  - Abdominal discomfort [Unknown]
  - Nocturia [Unknown]
  - Anal inflammation [Unknown]
  - Tongue erythema [Unknown]
  - Dry skin [Unknown]

NARRATIVE: CASE EVENT DATE: 2017
